FAERS Safety Report 24835153 (Version 1)
Quarter: 2025Q1

REPORT INFORMATION
  Report Type: Other
  Country: GB (occurrence: GB)
  Receive Date: 20250113
  Receipt Date: 20250113
  Transmission Date: 20250409
  Serious: Yes (Life-Threatening, Hospitalization, Other)
  Sender: CREEKWOOD PHARMACEUTICALS LLC
  Company Number: GB-Creekwood Pharmaceuticals LLC-2168936

PATIENT
  Age: 32 Year
  Sex: Female

DRUGS (1)
  1. HYDROXYCHLOROQUINE SULFATE [Suspect]
     Active Substance: HYDROXYCHLOROQUINE SULFATE
     Indication: Systemic lupus erythematosus

REACTIONS (2)
  - Acute cutaneous lupus erythematosus [Recovered/Resolved]
  - Toxic epidermal necrolysis [Recovered/Resolved]
